FAERS Safety Report 8814104 (Version 1)
Quarter: 2012Q4

REPORT INFORMATION
  Report Type: Spontaneous
  Country: US (occurrence: None)
  Receive Date: 20120926
  Receipt Date: 20120926
  Transmission Date: 20130627
  Serious: Yes (Other)
  Sender: FDA-Public Use
  Company Number: None

PATIENT
  Weight: 75 kg

DRUGS (2)
  1. LAMICTAL [Suspect]
     Indication: CEREBRAL PALSY
     Dosage: 3 BID PO
     Route: 048
     Dates: start: 20080721
  2. LAMICTAL [Suspect]
     Indication: INTRACTABLE EPILEPSY
     Dosage: 3 BID PO
     Route: 048
     Dates: start: 20080721

REACTIONS (1)
  - Epilepsy [None]
